FAERS Safety Report 5229208-2 (Version None)
Quarter: 2007Q1

REPORT INFORMATION
  Report Type: 
  Country: None (occurrence: None)
  Receive Date: 20061201
  Receipt Date: 20060928
  Transmission Date: 20070707
  Serious: No
  Sender: FDA-Public Use
  Company Number: US200608002157

PATIENT
  Age: 83 Year
  Sex: Female

DRUGS (15)
  1. CYMBALTA [Suspect]
     Indication: DIABETIC NEUROPATHY
     Dosage: 30 MG
     Dates: start: 20060807, end: 20060810
  2. AVANDIA /UNK/ (ROSIGLITAZONE MALEATE) [Concomitant]
  3. ATENOLOL [Concomitant]
  4. VALIUM /NET/ (DIAZEPAM) [Concomitant]
  5. HYDROCHLOROTHIAZIDE [Concomitant]
  6. METAMUCIL (GLUCOSE MONOHYDRATE, ISPAGHULA HUSK) [Concomitant]
  7. COLCHICINE (COLCHICINE) [Concomitant]
  8. ALLOPURINOL [Concomitant]
  9. ZOCOR [Concomitant]
  10. ATACAND /SWE/ (CANDESARTAN CILEXETIL) [Concomitant]
  11. KEPPRA /USA/ (LEVETIRACETAM) [Concomitant]
  12. PAMELOR /USA/ (NORTRIPTYLINE HYDROCHLORIDE) [Concomitant]
  13. NEURONTIN [Concomitant]
  14. OXYCODONE HCL [Concomitant]
  15. ELAVIL [Concomitant]

REACTIONS (5)
  - BLOOD PRESSURE INCREASED [None]
  - DECREASED ACTIVITY [None]
  - DIZZINESS [None]
  - INSOMNIA [None]
  - NAUSEA [None]
